FAERS Safety Report 10069781 (Version 1)
Quarter: 2014Q2

REPORT INFORMATION
  Report Type: Spontaneous
  Country: US (occurrence: US)
  Receive Date: 20140410
  Receipt Date: 20140410
  Transmission Date: 20141212
  Serious: No
  Sender: FDA-Public Use
  Company Number: US-PFIZER INC-2014098728

PATIENT
  Sex: Female

DRUGS (5)
  1. LYRICA [Suspect]
     Indication: NEURALGIA
     Dosage: 50 MG, UNK
  2. ZYCAL [Concomitant]
     Dosage: UNK
  3. HYDROXYZINE [Concomitant]
     Dosage: UNK
  4. ZANTAC [Concomitant]
     Dosage: UNK
  5. MUCINEX [Concomitant]
     Dosage: UNK

REACTIONS (4)
  - Weight increased [Unknown]
  - Dizziness [Unknown]
  - Vision blurred [Unknown]
  - Feeling abnormal [Unknown]
